FAERS Safety Report 4324867-0 (Version None)
Quarter: 2004Q1

REPORT INFORMATION
  Report Type: 
  Country: None (occurrence: None)
  Receive Date: 20040323
  Receipt Date: 20040308
  Transmission Date: 20041129
  Serious: Yes (Life-Threatening, Other)
  Sender: FDA-Public Use
  Company Number: 2004016593

PATIENT
  Age: 57 Year
  Sex: Female
  Weight: 60 kg

DRUGS (9)
  1. VFEND [Suspect]
     Indication: CANDIDIASIS
     Dosage: 350 MG DAILY,  INTRAVENOUS
     Route: 042
     Dates: start: 20040213, end: 20040213
  2. DIAMORPHINE (DIAMORPHINE) [Concomitant]
  3. PANTOPRAZOLE (PANTOPRAZOLE) [Concomitant]
  4. INSULIN HUMAN (INSULIN HUMAN) [Concomitant]
  5. FUROSEMIDE [Concomitant]
  6. AMLODIPINE [Concomitant]
  7. CIPROFLOXACIN [Concomitant]
  8. TRAMADOL HCL [Concomitant]
  9. VANCOMYCIN [Concomitant]

REACTIONS (7)
  - ANAPHYLACTIC REACTION [None]
  - BRONCHOSPASM [None]
  - DEPRESSED LEVEL OF CONSCIOUSNESS [None]
  - DIALYSIS [None]
  - FLUSHING [None]
  - HYPOGLYCAEMIA [None]
  - HYPOTENSION [None]
